FAERS Safety Report 15952507 (Version 3)
Quarter: 2020Q4

REPORT INFORMATION
  Report Type: Spontaneous
  Country: US (occurrence: US)
  Receive Date: 20190212
  Receipt Date: 20201216
  Transmission Date: 20210113
  Serious: Yes (Other)
  Sender: FDA-Public Use
  Company Number: US-PFIZER INC-2019055657

PATIENT
  Age: 74 Year
  Sex: Female
  Weight: 90.72 kg

DRUGS (3)
  1. LYRICA [Suspect]
     Active Substance: PREGABALIN
     Dosage: 50 MG, 1X/DAY
     Route: 048
  2. LYRICA [Suspect]
     Active Substance: PREGABALIN
     Dosage: 50 MG, 2X/DAY
     Route: 048
     Dates: start: 20191126
  3. LYRICA [Suspect]
     Active Substance: PREGABALIN
     Indication: FIBROMYALGIA
     Dosage: 50 MG, 3X/DAY
     Route: 048

REACTIONS (8)
  - Hand fracture [Unknown]
  - Memory impairment [Unknown]
  - Cystitis [Unknown]
  - Expired product administered [Unknown]
  - Fall [Unknown]
  - Intentional product use issue [Unknown]
  - Dementia [Unknown]
  - Body height decreased [Unknown]

NARRATIVE: CASE EVENT DATE: 20190128
